FAERS Safety Report 13113546 (Version 1)
Quarter: 2017Q1

REPORT INFORMATION
  Report Type: Spontaneous
  Country: FR (occurrence: FR)
  Receive Date: 20170113
  Receipt Date: 20170113
  Transmission Date: 20170428
  Serious: Yes (Hospitalization)
  Sender: FDA-Public Use
  Company Number: FR-TEVA-727616ROM

PATIENT
  Age: 71 Year
  Sex: Male

DRUGS (3)
  1. VESANOID [Suspect]
     Active Substance: TRETINOIN
     Indication: ACUTE MYELOID LEUKAEMIA
     Dosage: 80 MILLIGRAM DAILY;
     Dates: start: 20161122
  2. TRISENOX [Suspect]
     Active Substance: ARSENIC TRIOXIDE
     Indication: ACUTE MYELOID LEUKAEMIA
     Dosage: 11 MILLIGRAM DAILY;
     Route: 042
     Dates: start: 20161122, end: 20161214
  3. TRISENOX [Suspect]
     Active Substance: ARSENIC TRIOXIDE
     Dosage: 11 MILLIGRAM DAILY;
     Route: 042
     Dates: start: 20161217, end: 20161218

REACTIONS (2)
  - Encephalopathy [Recovered/Resolved]
  - Dyspnoea [Recovered/Resolved]

NARRATIVE: CASE EVENT DATE: 20161212
